FAERS Safety Report 9423301 (Version 2)
Quarter: 2013Q3

REPORT INFORMATION
  Report Type: Spontaneous
  Country: US (occurrence: US)
  Receive Date: 20130726
  Receipt Date: 20130801
  Transmission Date: 20140515
  Serious: No
  Sender: FDA-Public Use
  Company Number: US-BAYER-2013-088718

PATIENT
  Age: 31 Year
  Sex: Female

DRUGS (1)
  1. SAFYRAL [Suspect]
     Indication: POLYCYSTIC OVARIES
     Dosage: UNK

REACTIONS (7)
  - Adnexa uteri pain [None]
  - Dysgeusia [None]
  - Breast tenderness [None]
  - Breast pain [None]
  - Pain [None]
  - Off label use [None]
  - Product packaging issue [None]
